FAERS Safety Report 17165715 (Version 2)
Quarter: 2020Q1

REPORT INFORMATION
  Report Type: Spontaneous
  Country: US (occurrence: US)
  Receive Date: 20191217
  Receipt Date: 20200122
  Transmission Date: 20200409
  Serious: Yes (Death, Life-Threatening, Hospitalization, Other)
  Sender: FDA-Public Use
  Company Number: US-JNJFOC-20191212704

PATIENT
  Sex: Female

DRUGS (1)
  1. XARELTO [Suspect]
     Active Substance: RIVAROXABAN
     Indication: PRODUCT USED FOR UNKNOWN INDICATION
     Route: 048

REACTIONS (5)
  - Deep vein thrombosis [Unknown]
  - Splenic infarction [Unknown]
  - Cardiac death [Fatal]
  - Pulmonary embolism [Unknown]
  - Renal infarct [Unknown]

NARRATIVE: CASE EVENT DATE: 201911
